FAERS Safety Report 7623628-4 (Version None)
Quarter: 2011Q3

REPORT INFORMATION
  Report Type: 
  Country: None (occurrence: None)
  Receive Date: 20110712
  Receipt Date: 20110701
  Transmission Date: 20111222
  Serious: Yes (Other)
  Sender: FDA-Public Use
  Company Number: TRP_07815_2011

PATIENT
  Sex: Female
  Weight: 57.6068 kg

DRUGS (3)
  1. RIBAVIRIN [Suspect]
     Indication: HEPATITIS C
     Dosage: (800 MG, DAILY ORAL)
     Route: 048
     Dates: start: 20100511, end: 20101118
  2. PEGASYS [Suspect]
     Indication: HEPATITIS C
     Dosage: (180 UG 1X/WEEK INTRAMUSCULAR)
     Route: 030
     Dates: start: 20100511, end: 20101118
  3. PRENATAL VITAMINS /01549301/ [Concomitant]

REACTIONS (2)
  - DYSPNOEA [None]
  - MATERNAL EXPOSURE DURING PREGNANCY [None]
